FAERS Safety Report 23691522 (Version 1)
Quarter: 2024Q2

REPORT INFORMATION
  Report Type: Report from Study
  Country: US (occurrence: None)
  Receive Date: 20240401
  Receipt Date: 20240401
  Transmission Date: 20240716
  Serious: Yes (Life-Threatening, Other)
  Sender: FDA-Public Use
  Company Number: 2024A074210

PATIENT
  Sex: Female

DRUGS (1)
  1. CALQUENCE [Suspect]
     Active Substance: ACALABRUTINIB
     Route: 048

REACTIONS (6)
  - Dyspepsia [Unknown]
  - Pneumonia [Unknown]
  - Influenza [Unknown]
  - Contusion [Unknown]
  - Oedema peripheral [Unknown]
  - Blood disorder [Unknown]
